FAERS Safety Report 14505963 (Version 1)
Quarter: 2018Q1

REPORT INFORMATION
  Report Type: Spontaneous
  Country: BR (occurrence: BR)
  Receive Date: 20180208
  Receipt Date: 20180208
  Transmission Date: 20180509
  Serious: Yes (Other)
  Sender: FDA-Public Use
  Company Number: BR-BAYER-2017-183795

PATIENT
  Age: 43 Year
  Sex: Female

DRUGS (2)
  1. MIRENA [Suspect]
     Active Substance: LEVONORGESTREL
     Dosage: 20 MCG/24HR, CONT
     Route: 015
     Dates: start: 20170120, end: 20170909
  2. MIRENA [Suspect]
     Active Substance: LEVONORGESTREL
     Dosage: UNK

REACTIONS (10)
  - Abdominal pain lower [Recovered/Resolved]
  - Abdominal distension [Recovered/Resolved with Sequelae]
  - Fatigue [None]
  - Haemorrhagic ovarian cyst [Recovered/Resolved]
  - Vaginal haemorrhage [None]
  - Endometriosis [None]
  - Abdominal pain [Recovered/Resolved with Sequelae]
  - Libido decreased [None]
  - Ovarian cyst ruptured [Recovered/Resolved with Sequelae]
  - Dyspnoea [Recovered/Resolved with Sequelae]

NARRATIVE: CASE EVENT DATE: 201701
